FAERS Safety Report 5510536-8 (Version None)
Quarter: 2007Q4

REPORT INFORMATION
  Report Type: 
  Country: None (occurrence: None)
  Receive Date: 20071108
  Receipt Date: 20071031
  Transmission Date: 20080405
  Serious: Yes (Hospitalization)
  Sender: FDA-Public Use
  Company Number: JP-ELI_LILLY_AND_COMPANY-JP200708006604

PATIENT
  Sex: Male
  Weight: 49 kg

DRUGS (2)
  1. HUMALOG [Suspect]
     Dosage: 8 IU, 3/D
     Route: 058
     Dates: start: 20070719, end: 20070828
  2. HUMACART NPH [Suspect]
     Dosage: 8 IU, DAILY (1/D)
     Route: 058
     Dates: start: 20070726, end: 20070828

REACTIONS (2)
  - LIVER DISORDER [None]
  - VOMITING [None]
